FAERS Safety Report 8115436-5 (Version None)
Quarter: 2012Q1

REPORT INFORMATION
  Report Type: 
  Country: None (occurrence: None)
  Receive Date: 20120206
  Receipt Date: 20120123
  Transmission Date: 20120608
  Serious: Yes (Other)
  Sender: FDA-Public Use
  Company Number: US-RB-034141-12

PATIENT
  Age: 70 Year
  Sex: Male

DRUGS (1)
  1. MUCINEX DM [Suspect]
     Dosage: 1 TABLET EVERY 12 HOURS
     Route: 048
     Dates: start: 20111014

REACTIONS (2)
  - EPISTAXIS [None]
  - INCORRECT DRUG ADMINISTRATION DURATION [None]
